FAERS Safety Report 18707169 (Version 2)
Quarter: 2021Q1

REPORT INFORMATION
  Report Type: Report from Study
  Country: US (occurrence: US)
  Receive Date: 20210106
  Receipt Date: 20210319
  Transmission Date: 20210419
  Serious: Yes (Other)
  Sender: FDA-Public Use
  Company Number: US-EMD SERONO-9210515

PATIENT
  Age: 58 Year
  Sex: Female

DRUGS (1)
  1. MAVENCLAD [Suspect]
     Active Substance: CLADRIBINE
     Indication: MULTIPLE SCLEROSIS
     Dosage: YEAR ONE CYCLE ONE THERAPY
     Route: 048
     Dates: start: 20201203

REACTIONS (5)
  - Decreased appetite [Unknown]
  - Fatigue [Unknown]
  - Nausea [Unknown]
  - Palpitations [Unknown]
  - Loss of consciousness [Unknown]

NARRATIVE: CASE EVENT DATE: 202012
